FAERS Safety Report 9185396 (Version 1)
Quarter: 2012Q4

REPORT INFORMATION
  Report Type: 
  Country: US (occurrence: US)
  Receive Date: 20121031
  Receipt Date: 20121031
  Transmission Date: 20130627
  Serious: Yes (Life-Threatening, Hospitalization, Disabling, Other)
  Sender: FDA-Public Use
  Company Number: US-ELI_LILLY_AND_COMPANY-US201210006526

PATIENT
  Age: 63 Year
  Sex: Female

DRUGS (6)
  1. CYMBALTA [Suspect]
     Indication: FIBROMYALGIA
     Dosage: 30 mg, other, two capsules in morning and two in the evening
  2. CYMBALTA [Suspect]
     Dosage: 60 mg, bid
  3. METFORMIN [Concomitant]
  4. JANUVIA [Concomitant]
  5. POTASSIUM [Concomitant]
  6. B12 [Concomitant]

REACTIONS (16)
  - Viral infection [Unknown]
  - Bradycardia [Unknown]
  - Disability [Unknown]
  - Drug dose omission [Unknown]
  - Hypoxia [Unknown]
  - Head discomfort [Unknown]
  - Dizziness [Unknown]
  - Haemoglobin decreased [Unknown]
  - Malaise [Unknown]
  - Myalgia [Unknown]
  - Asthenia [Unknown]
  - Weight decreased [Unknown]
  - Blood potassium decreased [Unknown]
  - Hyperhidrosis [Unknown]
  - Muscle spasms [Unknown]
  - Decreased appetite [Unknown]
